FAERS Safety Report 8716263 (Version 4)
Quarter: 2013Q1

REPORT INFORMATION
  Report Type: Report from Study
  Country: JP (occurrence: JP)
  Receive Date: 20120810
  Receipt Date: 20130123
  Transmission Date: 20140127
  Serious: Yes (Hospitalization, Other)
  Sender: FDA-Public Use
  Company Number: JP-009507513-1207JPN012687

PATIENT
  Age: 40 Year
  Sex: Male
  Weight: 60 kg

DRUGS (18)
  1. PEGINTRON [Suspect]
     Indication: CHRONIC HEPATITIS C
     Dosage: 1.5 MICROGRAM PER KILOGRAM, QW
     Route: 058
     Dates: start: 20120508, end: 20120627
  2. PEGINTRON [Suspect]
     Dosage: 1.5 MICROGRAM PER KILOGRAM, QW
     Route: 058
     Dates: start: 20120704, end: 20121002
  3. REBETOL [Suspect]
     Indication: CHRONIC HEPATITIS C
     Dosage: 800 MG, ONCE
     Route: 048
     Dates: start: 20120508, end: 20120517
  4. REBETOL [Suspect]
     Dosage: 600 MG, QD
     Route: 048
     Dates: start: 20120518, end: 20120528
  5. REBETOL [Suspect]
     Dosage: 400 MG, QD
     Route: 048
     Dates: start: 20120529, end: 20120618
  6. REBETOL [Suspect]
     Dosage: 200 MG, QD
     Route: 048
     Dates: start: 20120619, end: 20120627
  7. REBETOL [Suspect]
     Dosage: 400 MG,QD
     Route: 048
     Dates: start: 20120704, end: 20120806
  8. REBETOL [Suspect]
     Dosage: 200 MG, QD
     Route: 048
     Dates: start: 20120904, end: 20120917
  9. REBETOL [Suspect]
     Dosage: 400 MG, QD
     Route: 048
     Dates: start: 20120918
  10. TELAVIC [Suspect]
     Indication: CHRONIC HEPATITIS C
     Dosage: 2000 MG, QD
     Route: 048
     Dates: start: 20120508, end: 20120627
  11. GASMOTIN [Concomitant]
     Indication: PROPHYLAXIS
     Dosage: FORMULATION POR (UNSPECIFIED)
     Route: 048
  12. ALLOPURINOL [Concomitant]
     Indication: PROPHYLAXIS
     Dosage: 300 MG, UNK, FORMULATION: POR (UNSPECIFIED)
     Route: 048
  13. ALLOPURINOL [Concomitant]
     Dosage: 200 UNK, QD
     Route: 048
     Dates: start: 20120707
  14. PERORIC [Concomitant]
     Indication: PROPHYLAXIS
     Dosage: 30 MG, UNK, FORMULATION POR (UNSPECIFIED)
     Route: 048
  15. SEDEKOPAN [Concomitant]
     Indication: PROPHYLAXIS
     Dosage: 1.5 MG, UNK, FORMULATION POR(UNSPECIFIED)
     Route: 048
  16. PARIET [Concomitant]
     Indication: PROPHYLAXIS
     Dosage: 10 MG, QD, FORMULATION: POR
     Route: 048
  17. CONSTAN [Concomitant]
     Indication: PROPHYLAXIS
     Dosage: 1.2 MG, QD, FORMULATION:POR
     Route: 048
  18. MEDETAX [Concomitant]
     Indication: PROPHYLAXIS
     Dosage: 2 MG, QD, FORMULATION:POR
     Route: 048

REACTIONS (5)
  - Cholecystitis acute [Recovered/Resolved]
  - Blood creatinine increased [Not Recovered/Not Resolved]
  - White blood cell count decreased [Not Recovered/Not Resolved]
  - Haemoglobin decreased [Recovered/Resolved]
  - Anaemia [Not Recovered/Not Resolved]
